FAERS Safety Report 24853058 (Version 3)
Quarter: 2025Q1

REPORT INFORMATION
  Report Type: Report from Study
  Country: IE (occurrence: IE)
  Receive Date: 20250116
  Receipt Date: 20250305
  Transmission Date: 20250408
  Serious: Yes (Hospitalization)
  Sender: ABBVIE
  Company Number: IE-ABBVIE-6081267

PATIENT
  Age: 82 Year
  Sex: Female

DRUGS (16)
  1. CARBIDOPA\LEVODOPA [Suspect]
     Active Substance: CARBIDOPA\LEVODOPA
     Indication: Parkinson^s disease
     Route: 050
     Dates: start: 20161125, end: 20161125
  2. CARBIDOPA\LEVODOPA [Suspect]
     Active Substance: CARBIDOPA\LEVODOPA
     Route: 050
     Dates: start: 20250109
  3. CARBIDOPA\LEVODOPA [Suspect]
     Active Substance: CARBIDOPA\LEVODOPA
     Route: 050
     Dates: start: 20250113, end: 20250113
  4. CARBIDOPA\LEVODOPA [Suspect]
     Active Substance: CARBIDOPA\LEVODOPA
     Route: 050
     Dates: start: 20250226
  5. AZILECT [Concomitant]
     Active Substance: RASAGILINE MESYLATE
     Indication: Product used for unknown indication
     Route: 050
  6. PRAMIPEXOLE [Concomitant]
     Active Substance: PRAMIPEXOLE
     Indication: Product used for unknown indication
     Dosage: MIRAPEXIN PROLONGED RELEASE?DOSE: 1.05 MG
  7. SINEMET CR [Concomitant]
     Active Substance: CARBIDOPA\LEVODOPA
     Indication: Product used for unknown indication
     Dosage: 200/50
     Route: 050
  8. LIPITOR [Concomitant]
     Active Substance: ATORVASTATIN CALCIUM
     Indication: Product used for unknown indication
     Route: 050
  9. ZOPICLONE [Concomitant]
     Active Substance: ZOPICLONE
     Indication: Product used for unknown indication
     Route: 050
  10. MOTILIUM [Concomitant]
     Active Substance: DOMPERIDONE
     Indication: Product used for unknown indication
     Route: 050
  11. SENOKOT [Concomitant]
     Active Substance: SENNOSIDES
     Indication: Product used for unknown indication
     Dosage: 2 N/A
     Route: 050
  12. MOVICOL [Concomitant]
     Active Substance: POLYETHYLENE GLYCOL 3350\POTASSIUM CHLORIDE\SODIUM BICARBONATE\SODIUM CHLORIDE
     Indication: Product used for unknown indication
     Dosage: 1 N/A
     Route: 050
  13. SINEMET [Concomitant]
     Active Substance: CARBIDOPA\LEVODOPA
     Indication: Product used for unknown indication
     Route: 050
  14. VIMOVO [Concomitant]
     Active Substance: ESOMEPRAZOLE MAGNESIUM\NAPROXEN
     Indication: Product used for unknown indication
     Route: 050
  15. MIRABEGRON [Concomitant]
     Active Substance: MIRABEGRON
     Indication: Product used for unknown indication
     Route: 050
  16. NALOXONE HYDROCHLORIDE\OXYCODONE HYDROCHLORIDE [Concomitant]
     Active Substance: NALOXONE HYDROCHLORIDE\OXYCODONE HYDROCHLORIDE
     Indication: Product used for unknown indication
     Route: 050

REACTIONS (4)
  - Urinary tract infection [Not Recovered/Not Resolved]
  - Bladder catheterisation [Not Recovered/Not Resolved]
  - Device dislocation [Not Recovered/Not Resolved]
  - Off label use [Not Recovered/Not Resolved]

NARRATIVE: CASE EVENT DATE: 20241201
